FAERS Safety Report 9499444 (Version 3)
Quarter: 2013Q4

REPORT INFORMATION
  Report Type: Spontaneous
  Country: US (occurrence: None)
  Receive Date: 20130107
  Receipt Date: 20131226
  Transmission Date: 20140711
  Serious: Yes (Other)
  Sender: FDA-Public Use
  Company Number: PHEH2012US022070

PATIENT
  Sex: Male

DRUGS (1)
  1. GILENYA [Suspect]
     Route: 048

REACTIONS (2)
  - Fatigue [None]
  - Inappropriate schedule of drug administration [None]
